FAERS Safety Report 24791376 (Version 1)
Quarter: 2024Q4

REPORT INFORMATION
  Report Type: Spontaneous
  Country: IT (occurrence: IT)
  Receive Date: 20241231
  Receipt Date: 20241231
  Transmission Date: 20250114
  Serious: Yes (Other)
  Sender: NOVO NORDISK
  Company Number: IT-NOVOPROD-1331913

PATIENT
  Age: 51 Year
  Sex: Female
  Weight: 89.5 kg

DRUGS (6)
  1. WEGOVY [Suspect]
     Active Substance: SEMAGLUTIDE
     Indication: Body mass index increased
     Dosage: UNK
     Dates: start: 20240907, end: 20240921
  2. METFORMIN [Concomitant]
     Active Substance: METFORMIN HYDROCHLORIDE
     Dosage: 500 MG, TID
  3. TIBOLONE [Concomitant]
     Active Substance: TIBOLONE
     Dosage: UNK
     Dates: start: 2023
  4. CHOLECALCIFEROL [Concomitant]
     Active Substance: CHOLECALCIFEROL
     Dosage: 50^000 MONTHLY
     Route: 048
     Dates: start: 2024
  5. DENOSUMAB [Concomitant]
     Active Substance: DENOSUMAB
     Dosage: 60 MG
     Route: 058
     Dates: start: 20240902
  6. ROSUVASTATINE/EZETIMIBE [Concomitant]
     Dosage: 10/10
     Route: 048
     Dates: start: 2024

REACTIONS (3)
  - Angioedema [Recovering/Resolving]
  - Swelling of eyelid [Recovering/Resolving]
  - Vomiting [Recovering/Resolving]

NARRATIVE: CASE EVENT DATE: 20240911
